FAERS Safety Report 23261597 (Version 1)
Quarter: 2023Q4

REPORT INFORMATION
  Report Type: Spontaneous
  Country: CN (occurrence: CN)
  Receive Date: 20231205
  Receipt Date: 20231205
  Transmission Date: 20240109
  Serious: Yes (Other)
  Sender: FDA-Public Use
  Company Number: CN-MLMSERVICE-20231117-4670615-1

PATIENT
  Age: 47 Year
  Sex: Male

DRUGS (12)
  1. CARBOPLATIN [Suspect]
     Active Substance: CARBOPLATIN
     Indication: Lung adenocarcinoma stage IV
     Dosage: CARBOPLATIN 0.5 G D1
     Dates: start: 20210826
  2. PEMETREXED [Suspect]
     Active Substance: PEMETREXED
     Indication: Non-small cell lung cancer stage IV
     Dosage: PEMETREXED 1.0 G D1
     Dates: start: 20210826
  3. PEMETREXED [Suspect]
     Active Substance: PEMETREXED
     Indication: Metastases to heart
     Dosage: PEMETREXED 1.0 G D1
     Dates: start: 20210826
  4. CARBOPLATIN [Suspect]
     Active Substance: CARBOPLATIN
     Indication: Metastases to gastrointestinal tract
     Dosage: CARBOPLATIN 0.5 G D1
     Dates: start: 20210826
  5. CARBOPLATIN [Suspect]
     Active Substance: CARBOPLATIN
     Indication: Metastases to liver
     Dosage: CARBOPLATIN 0.5 G D1
     Dates: start: 20210826
  6. CARBOPLATIN [Suspect]
     Active Substance: CARBOPLATIN
     Indication: Non-small cell lung cancer stage IV
     Dosage: CARBOPLATIN 0.5 G D1
     Dates: start: 20210826
  7. CARBOPLATIN [Suspect]
     Active Substance: CARBOPLATIN
     Indication: Metastases to heart
     Dosage: CARBOPLATIN 0.5 G D1
     Dates: start: 20210826
  8. PEMETREXED [Suspect]
     Active Substance: PEMETREXED
     Indication: Lung adenocarcinoma stage IV
     Dosage: PEMETREXED 1.0 G D1
     Dates: start: 20210826
  9. PEMETREXED [Suspect]
     Active Substance: PEMETREXED
     Indication: Metastases to gastrointestinal tract
     Dosage: PEMETREXED 1.0 G D1
     Dates: start: 20210826
  10. PEMETREXED [Suspect]
     Active Substance: PEMETREXED
     Indication: Metastases to liver
     Dosage: PEMETREXED 1.0 G D1
     Dates: start: 20210826
  11. PEMETREXED [Suspect]
     Active Substance: PEMETREXED
     Indication: Metastases to the mediastinum
     Dosage: PEMETREXED 1.0 G D1
     Dates: start: 20210826
  12. CARBOPLATIN [Suspect]
     Active Substance: CARBOPLATIN
     Indication: Metastases to the mediastinum
     Dosage: CARBOPLATIN 0.5 G D1
     Dates: start: 20210826

REACTIONS (2)
  - Myelosuppression [Unknown]
  - Bacterial infection [Recovering/Resolving]

NARRATIVE: CASE EVENT DATE: 20210801
